FAERS Safety Report 9240951 (Version 1)
Quarter: 2013Q2

REPORT INFORMATION
  Report Type: Spontaneous
  Country: US (occurrence: None)
  Receive Date: 20130418
  Receipt Date: 20130418
  Transmission Date: 20140414
  Serious: No
  Sender: FDA-Public Use
  Company Number: None

PATIENT
  Age: 4 Year
  Sex: Male
  Weight: 17.15 kg

DRUGS (2)
  1. MONTELUKAST [Suspect]
     Indication: RHINITIS ALLERGIC
     Dosage: MONTELUKAST DAILY ORAL
     Route: 048
     Dates: start: 20120822, end: 20120830
  2. MONTELUKAST [Suspect]
     Indication: ASTHMA
     Dosage: MONTELUKAST DAILY ORAL
     Route: 048
     Dates: start: 20120822, end: 20120830

REACTIONS (4)
  - Rhinitis [None]
  - Condition aggravated [None]
  - Treatment failure [None]
  - Product substitution issue [None]
